FAERS Safety Report 7029705-3 (Version None)
Quarter: 2010Q4

REPORT INFORMATION
  Report Type: 
  Country: None (occurrence: None)
  Receive Date: 20101005
  Receipt Date: 20101005
  Transmission Date: 20110411
  Serious: Yes (Hospitalization)
  Sender: FDA-Public Use
  Company Number: None

PATIENT
  Sex: Male
  Weight: 60.8 kg

DRUGS (9)
  1. GEMCITABINE [Suspect]
     Indication: PANCREATIC CARCINOMA
     Dosage: 1440 MG Q 2 WEEKS IV
     Route: 042
     Dates: start: 20100909, end: 20100923
  2. OXALIPLATIN [Suspect]
     Indication: PANCREATIC CARCINOMA
     Dosage: 153 MG Q 2 WEEKS IV
     Route: 042
     Dates: start: 20100910, end: 20100924
  3. OXYCODONE HCL EXTENDED-RELEASE [Concomitant]
  4. CARVEDILOL [Concomitant]
  5. MULTI-VITAMIN [Concomitant]
  6. CO Q10 [Concomitant]
  7. MEGACE [Concomitant]
  8. LORTAB [Concomitant]
  9. IMODIUM [Concomitant]

REACTIONS (5)
  - DEHYDRATION [None]
  - DIZZINESS [None]
  - HYPOPHAGIA [None]
  - PAIN [None]
  - SYNCOPE [None]
